FAERS Safety Report 13812923 (Version 1)
Quarter: 2017Q3

REPORT INFORMATION
  Report Type: Spontaneous
  Country: US (occurrence: US)
  Receive Date: 20170729
  Receipt Date: 20170729
  Transmission Date: 20171127
  Serious: Yes (Other)
  Sender: FDA-Public Use
  Company Number: US-BRISTOL-MYERS SQUIBB COMPANY-BMS-2017-066982

PATIENT
  Age: 59 Year
  Sex: Female

DRUGS (1)
  1. KENALOG [Suspect]
     Active Substance: TRIAMCINOLONE ACETONIDE
     Indication: PRODUCT USED FOR UNKNOWN INDICATION
     Dosage: 80 MG, UNK
     Route: 030
     Dates: start: 20150109

REACTIONS (13)
  - Injection site pain [Unknown]
  - Myalgia [Unknown]
  - Atrophy [Unknown]
  - Asthenia [Unknown]
  - Injection site indentation [Unknown]
  - Injection site discolouration [Unknown]
  - Discomfort [Unknown]
  - Mobility decreased [Unknown]
  - Musculoskeletal pain [Unknown]
  - Surgery [Unknown]
  - Injection site bruising [Unknown]
  - Injection site nerve damage [Unknown]
  - Neuralgia [Unknown]

NARRATIVE: CASE EVENT DATE: 20150109
